FAERS Safety Report 5306944-0 (Version None)
Quarter: 2007Q2

REPORT INFORMATION
  Report Type: 
  Country: None (occurrence: None)
  Receive Date: 20070419
  Receipt Date: 20070409
  Transmission Date: 20071010
  Serious: Yes (Hospitalization)
  Sender: FDA-Public Use
  Company Number: 2007AL001408

PATIENT
  Age: 74 Year
  Sex: Female

DRUGS (5)
  1. MINOXIDIL [Suspect]
     Indication: ALOPECIA
     Dosage: BID; TOP
     Route: 061
     Dates: start: 20070212, end: 20070306
  2. PROTONIX [Concomitant]
  3. FOLIC ACID [Concomitant]
  4. ENALAPRIL [Concomitant]
  5. HYDROCHLOROTHIAZIDE [Concomitant]

REACTIONS (6)
  - ANAEMIA [None]
  - ATRIAL FIBRILLATION [None]
  - CHEST PAIN [None]
  - CORONARY ARTERY OCCLUSION [None]
  - OEDEMA PERIPHERAL [None]
  - WEIGHT INCREASED [None]
